FAERS Safety Report 4630748-5 (Version None)
Quarter: 2005Q2

REPORT INFORMATION
  Report Type: 
  Country: None (occurrence: None)
  Receive Date: 20050406
  Receipt Date: 20050325
  Transmission Date: 20051028
  Serious: Yes (Hospitalization, Other)
  Sender: FDA-Public Use
  Company Number: KII-2005-0015654

PATIENT
  Age: 19 Year
  Sex: Male

DRUGS (4)
  1. MORPHINE SULFATE [Suspect]
     Dosage: ORAL
     Route: 048
  2. ETHANOL (ETHANOL) [Suspect]
     Dosage: ORAL
     Route: 048
  3. APAP (PARACETAMOL) [Suspect]
  4. ACETYLSALICYLIC ACID SRT [Suspect]

REACTIONS (10)
  - COMA [None]
  - CYANOSIS [None]
  - FALL [None]
  - FOAMING AT MOUTH [None]
  - INTENTIONAL MISUSE [None]
  - LIVEDO RETICULARIS [None]
  - POLYSUBSTANCE ABUSE [None]
  - RESPIRATORY RATE DECREASED [None]
  - SOMNOLENCE [None]
  - VOMITING [None]
